FAERS Safety Report 9407791 (Version 1)
Quarter: 2013Q3

REPORT INFORMATION
  Report Type: Spontaneous
  Country: US (occurrence: None)
  Receive Date: 20130717
  Receipt Date: 20130717
  Transmission Date: 20140515
  Serious: Yes (Other)
  Sender: FDA-Public Use
  Company Number: None

PATIENT
  Age: 45 Year
  Sex: Male

DRUGS (1)
  1. COPAXONE, 20 MG, TEVA [Suspect]
     Indication: MULTIPLE SCLEROSIS
     Dates: start: 20130613

REACTIONS (5)
  - Chest discomfort [None]
  - Dizziness [None]
  - Erythema [None]
  - Dyspnoea [None]
  - Feeling cold [None]
